FAERS Safety Report 5794545-X (Version None)
Quarter: 2008Q2

REPORT INFORMATION
  Report Type: 
  Country: None (occurrence: None)
  Receive Date: 20080626
  Receipt Date: 20080616
  Transmission Date: 20081010
  Serious: Yes (Other)
  Sender: FDA-Public Use
  Company Number: TPG2008A00878

PATIENT
  Age: 68 Year
  Sex: Male

DRUGS (6)
  1. ACTOS [Suspect]
     Indication: DIABETES MELLITUS
     Dosage: 30 MG (30 MG, 1 IN 1 D); PER ORAL
     Route: 048
     Dates: start: 20071029, end: 20071107
  2. MICARDIS 80/12.5 (HYDROCHLOROTHIAZIDE, TELMISARTAN) [Concomitant]
  3. CONCOR COR (BISOPROLOL) [Concomitant]
  4. ATORVASTATIN CALCIUM [Concomitant]
  5. EZETROL (EZETIMIBE) [Concomitant]
  6. ACETYLSALICYLIC ACID SRT [Concomitant]

REACTIONS (3)
  - DISTURBANCE IN ATTENTION [None]
  - PARAESTHESIA [None]
  - PARTNER STRESS [None]
